FAERS Safety Report 8323421-3 (Version None)
Quarter: 2012Q2

REPORT INFORMATION
  Report Type: 
  Country: None (occurrence: None)
  Receive Date: 20120430
  Receipt Date: 20120409
  Transmission Date: 20120825
  Serious: Yes (Other)
  Sender: FDA-Public Use
  Company Number: PHHY2012MX035737

PATIENT
  Sex: Female

DRUGS (6)
  1. ALZAM [Concomitant]
     Indication: MUSCLE RELAXANT THERAPY
     Dosage: 1 DF/DAY
     Dates: start: 20070101
  2. LASIX [Concomitant]
     Dosage: 0.5 DF/DAY
     Dates: start: 20120401
  3. ENSURE [Concomitant]
     Dosage: 1 DF/DAY
     Dates: start: 20111101
  4. ZOLEDRONOC ACID [Suspect]
     Indication: OSTEOPOROSIS
     Dosage: 5 MG/100 ML
     Route: 042
     Dates: start: 20110401
  5. ACENOCOUMAROL [Concomitant]
     Dosage: 0.5 DF/DAY
     Dates: start: 19960101
  6. CALCIUM CARBONATE [Concomitant]
     Indication: OSTEOPOROSIS
     Dosage: 1 DF, PER DAY
     Dates: start: 20110101

REACTIONS (2)
  - BLINDNESS [None]
  - CEREBROVASCULAR ACCIDENT [None]
